FAERS Safety Report 7392613-2 (Version None)
Quarter: 2011Q2

REPORT INFORMATION
  Report Type: 
  Country: None (occurrence: None)
  Receive Date: 20110404
  Receipt Date: 20110323
  Transmission Date: 20111010
  Serious: Yes (Death)
  Sender: FDA-Public Use
  Company Number: NL-CELGENEUS-114-20785-11032720

PATIENT
  Sex: Male
  Weight: 77.4 kg

DRUGS (10)
  1. THALIDOMIDE [Suspect]
     Dosage: 100 MILLIGRAM
     Route: 048
     Dates: start: 20110214
  2. DEXAMETHASONE [Suspect]
     Indication: MULTIPLE MYELOMA
     Dosage: 40 MILLIGRAM
     Route: 048
     Dates: start: 20110114
  3. ACENOCOUMAROL [Concomitant]
     Indication: ATRIAL FIBRILLATION
     Dosage: 1 MILLIGRAM
     Route: 048
     Dates: end: 20110309
  4. DEXAMETHASONE [Suspect]
     Dosage: 40 MILLIGRAM
     Route: 048
     Dates: start: 20110214
  5. THALIDOMIDE [Suspect]
     Indication: MULTIPLE MYELOMA
     Dosage: 100 MILLIGRAM
     Route: 048
     Dates: start: 20110114
  6. LOVENOX [Concomitant]
     Indication: ATRIAL FIBRILLATION
     Dosage: .125 MILLIGRAM
     Route: 048
     Dates: start: 20100513, end: 20110309
  7. FUROSEMIDE [Concomitant]
     Indication: ATRIAL FIBRILLATION
     Dosage: 40 MILLIGRAM
     Route: 048
     Dates: start: 20101216, end: 20110309
  8. SOTALOL [Concomitant]
     Indication: ATRIAL FIBRILLATION
     Dosage: 80 MILLIGRAM
     Route: 048
     Dates: start: 20101101, end: 20110309
  9. APD [Concomitant]
     Dosage: 1.0714 MILLIGRAM
     Route: 051
     Dates: start: 20101012, end: 20110309
  10. SPIRIVA [Concomitant]
     Route: 055
     Dates: start: 20101206, end: 20110309

REACTIONS (3)
  - PNEUMONIA [None]
  - CARDIAC ARREST [None]
  - APNOEA [None]
